FAERS Safety Report 11618889 (Version 1)
Quarter: 2015Q4

REPORT INFORMATION
  Report Type: Spontaneous
  Country: IE (occurrence: IE)
  Receive Date: 20151012
  Receipt Date: 20151012
  Transmission Date: 20160304
  Serious: Yes (Other)
  Sender: FDA-Public Use
  Company Number: IE-ROCHE-1643803

PATIENT
  Age: 77 Year
  Sex: Female

DRUGS (3)
  1. BONVIVA [Suspect]
     Active Substance: IBANDRONATE SODIUM
     Indication: OSTEOPOROSIS
     Route: 048
     Dates: start: 201508
  2. PARACETAMOL [Concomitant]
     Active Substance: ACETAMINOPHEN
     Indication: ARTHRITIS
     Route: 065
  3. MEFENAMIC-ACID [Concomitant]
     Active Substance: MEFENAMIC ACID
     Indication: ARTHRITIS
     Route: 065

REACTIONS (6)
  - Tinnitus [Recovered/Resolved]
  - Vulvovaginal pruritus [Recovered/Resolved]
  - Vulva cyst [Recovered/Resolved]
  - Ear pain [Recovered/Resolved]
  - Pain in jaw [Recovered/Resolved]
  - Feeling hot [Recovered/Resolved]

NARRATIVE: CASE EVENT DATE: 20150921
